FAERS Safety Report 25889894 (Version 1)
Quarter: 2025Q4

REPORT INFORMATION
  Report Type: Spontaneous
  Country: US (occurrence: US)
  Receive Date: 20251007
  Receipt Date: 20251007
  Transmission Date: 20260117
  Serious: Yes (Other)
  Sender: SANOFI AVENTIS
  Company Number: US-SA-2025SA296109

PATIENT
  Age: 64 Year
  Sex: Female

DRUGS (1)
  1. DUPIXENT [Suspect]
     Active Substance: DUPILUMAB
     Indication: Neurodermatitis
     Dosage: UNK
     Route: 003

REACTIONS (8)
  - Tongue neoplasm malignant stage unspecified [Unknown]
  - Peripheral swelling [Unknown]
  - Tooth loss [Unknown]
  - Haemorrhage [Unknown]
  - Pruritus [Unknown]
  - Rash [Unknown]
  - Surgery [Unknown]
  - Incorrect route of product administration [Unknown]
